FAERS Safety Report 8545751-2 (Version None)
Quarter: 2012Q3

REPORT INFORMATION
  Report Type: 
  Country: None (occurrence: None)
  Receive Date: 20120727
  Receipt Date: 20120719
  Transmission Date: 20120928
  Serious: Yes (Death, Hospitalization)
  Sender: FDA-Public Use
  Company Number: GB-UCBSA-062247

PATIENT
  Sex: Female
  Weight: 68 kg

DRUGS (10)
  1. ORAMORPH SR [Concomitant]
  2. TIOTROPIUM [Concomitant]
  3. PREDNISOLONE [Concomitant]
  4. SALMETEROL [Concomitant]
  5. CIMZIA [Suspect]
     Indication: RHEUMATOID ARTHRITIS
     Route: 058
     Dates: start: 20110510
  6. TEICOPLANIN [Concomitant]
  7. AMITRIPTYLINE HYDROCHLORIDE [Concomitant]
  8. GENTIMYCIN [Concomitant]
  9. RANITIDINE [Concomitant]
  10. AZITHROMYCIN [Concomitant]

REACTIONS (3)
  - ABDOMINAL ABSCESS [None]
  - MULTI-ORGAN FAILURE [None]
  - DIVERTICULUM [None]
